FAERS Safety Report 4358409-0 (Version None)
Quarter: 2004Q2

REPORT INFORMATION
  Report Type: 
  Country: None (occurrence: None)
  Receive Date: 20040511
  Receipt Date: 20040427
  Transmission Date: 20050107
  Serious: Yes (Hospitalization)
  Sender: FDA-Public Use
  Company Number: US-JNJFOC-20040405860

PATIENT
  Age: 52 Year
  Sex: Female
  Weight: 108.8633 kg

DRUGS (13)
  1. INFLIXIMAB (INFLIXIMAB, RECOMBIANNT) LYOPHILIZED POWDER [Suspect]
     Indication: RHEUMATOID ARTHRITIS
     Dosage: INTRAVENOUS
     Route: 042
     Dates: start: 20030328
  2. CARAFATE [Concomitant]
  3. PRILOSEC [Concomitant]
  4. METHOTREXATE [Concomitant]
  5. REGLAN [Concomitant]
  6. PREDNISONE [Concomitant]
  7. CARDIZEM CD [Concomitant]
  8. ADVAIR (SERETIDE MITE) [Concomitant]
  9. ALBUTEROL [Concomitant]
  10. SINGULAIR [Concomitant]
  11. TOPROL-XL [Concomitant]
  12. BENICAR [Concomitant]
  13. LIPITOR [Concomitant]

REACTIONS (1)
  - SUPRAVENTRICULAR TACHYCARDIA [None]
